FAERS Safety Report 8508418-2 (Version None)
Quarter: 2012Q3

REPORT INFORMATION
  Report Type: 
  Country: None (occurrence: None)
  Receive Date: 20120713
  Receipt Date: 20120629
  Transmission Date: 20120928
  Serious: Yes (Other)
  Sender: FDA-Public Use
  Company Number: GB-VALEANT-2012VX003062

PATIENT
  Age: 84 Year
  Sex: Male

DRUGS (1)
  1. EFUDEX [Suspect]
     Route: 061

REACTIONS (3)
  - CONJUNCTIVAL SCAR [None]
  - PAIN [None]
  - DRUG ADMINISTRATION ERROR [None]
